FAERS Safety Report 9555604 (Version 2)
Quarter: 2013Q4

REPORT INFORMATION
  Report Type: Report from Study
  Country: AT (occurrence: AT)
  Receive Date: 20130926
  Receipt Date: 20131122
  Transmission Date: 20140711
  Serious: Yes (Other)
  Sender: FDA-Public Use
  Company Number: PHHY2013AT105852

PATIENT
  Sex: 0

DRUGS (2)
  1. TASIGNA [Suspect]
     Indication: CHRONIC MYELOID LEUKAEMIA
     Dosage: 400 MG, BID
     Route: 048
  2. TASIGNA [Suspect]
     Dosage: UNK
     Route: 048

REACTIONS (3)
  - Metabolic syndrome [Unknown]
  - Hepatic steatosis [Unknown]
  - Jaundice [Unknown]
